FAERS Safety Report 25196331 (Version 1)
Quarter: 2025Q2

REPORT INFORMATION
  Report Type: Report from Study
  Country: US (occurrence: US)
  Receive Date: 20250415
  Receipt Date: 20250415
  Transmission Date: 20250716
  Serious: Yes (Other)
  Sender: TAKEDA
  Company Number: US-TAKEDA-2025TUS035597

PATIENT
  Sex: Male
  Weight: 19.5 kg

DRUGS (19)
  1. HUMAN IMMUNOGLOBULIN G [Suspect]
     Active Substance: HUMAN IMMUNOGLOBULIN G
     Indication: Immunodeficiency common variable
     Dosage: 35 GRAM, Q2WEEKS
  2. RIZATRIPTAN [Concomitant]
     Active Substance: RIZATRIPTAN
  3. SYNTHROID [Concomitant]
     Active Substance: LEVOTHYROXINE SODIUM
  4. MINERALS\VITAMINS [Concomitant]
     Active Substance: MINERALS\VITAMINS
  5. OXYGEN [Concomitant]
     Active Substance: OXYGEN
  6. COSENTYX [Concomitant]
     Active Substance: SECUKINUMAB
  7. LIDOCAINE [Concomitant]
     Active Substance: LIDOCAINE
  8. EPINEPHRINE [Concomitant]
     Active Substance: EPINEPHRINE
  9. BENZONATATE [Concomitant]
     Active Substance: BENZONATATE
  10. ZEPBOUND [Concomitant]
     Active Substance: TIRZEPATIDE
  11. PREDNISONE [Concomitant]
     Active Substance: PREDNISONE
  12. LEXAPRO [Concomitant]
     Active Substance: ESCITALOPRAM OXALATE
  13. ALBUTEROL [Concomitant]
     Active Substance: ALBUTEROL
  14. ADVAIR HFA [Concomitant]
     Active Substance: FLUTICASONE PROPIONATE\SALMETEROL XINAFOATE
  15. PROPAFENONE [Concomitant]
     Active Substance: PROPAFENONE
  16. VITAMIN D [Concomitant]
     Active Substance: VITAMIN D NOS
  17. METOPROLOL SUCCINATE [Concomitant]
     Active Substance: METOPROLOL SUCCINATE
  18. DEXILANT [Concomitant]
     Active Substance: DEXLANSOPRAZOLE
  19. SINGULAIR [Concomitant]
     Active Substance: MONTELUKAST SODIUM

REACTIONS (2)
  - Cataract [Unknown]
  - Body temperature decreased [Unknown]
